FAERS Safety Report 4902056-6 (Version None)
Quarter: 2006Q1

REPORT INFORMATION
  Report Type: 
  Country: None (occurrence: None)
  Receive Date: 20060206
  Receipt Date: 20051102
  Transmission Date: 20060701
  Serious: Yes (Other)
  Sender: FDA-Public Use
  Company Number: US-GLAXOSMITHKLINE-A0580650A

PATIENT
  Age: 11 Year
  Sex: Female
  Weight: 57.7 kg

DRUGS (2)
  1. COMBIVIR [Suspect]
     Indication: HIV INFECTION
     Dosage: 1TAB TWICE PER DAY
     Route: 048
     Dates: start: 20030402
  2. SUSTIVA [Suspect]
     Indication: HIV INFECTION
     Dosage: 600MG AT NIGHT
     Route: 048
     Dates: start: 20030402

REACTIONS (2)
  - MUSCULAR WEAKNESS [None]
  - MYASTHENIA GRAVIS [None]
